FAERS Safety Report 6030905-X (Version None)
Quarter: 2009Q1

REPORT INFORMATION
  Report Type: 
  Country: None (occurrence: None)
  Receive Date: 20090107
  Receipt Date: 20081229
  Transmission Date: 20090719
  Serious: Yes (Hospitalization, Other)
  Sender: FDA-Public Use
  Company Number: CA-ELI_LILLY_AND_COMPANY-CA200812006164

PATIENT
  Age: 72 Year
  Sex: Female

DRUGS (15)
  1. FORTEO [Suspect]
     Indication: OSTEOPOROSIS
     Dosage: 20 UG, DAILY (1/D)
     Dates: start: 20080416
  2. DOXEPIN HCL [Concomitant]
  3. MICROBID [Concomitant]
  4. DICETEL [Concomitant]
  5. SINGULAIR [Concomitant]
  6. SYMBICORT [Concomitant]
  7. LORAZEPAM [Concomitant]
  8. TRAMACET [Concomitant]
  9. TRAZODONE HCL [Concomitant]
  10. AVELOX [Concomitant]
  11. GRAVOL TAB [Concomitant]
  12. NORVASC [Concomitant]
  13. TYLENOL (CAPLET) [Concomitant]
  14. METOPROLOL [Concomitant]
  15. ALLEGRA [Concomitant]

REACTIONS (1)
  - LOSS OF CONSCIOUSNESS [None]
